FAERS Safety Report 4461453-6 (Version None)
Quarter: 2004Q3

REPORT INFORMATION
  Report Type: 
  Country: None (occurrence: None)
  Receive Date: 20040914
  Receipt Date: 20040831
  Transmission Date: 20050211
  Serious: Yes (Hospitalization)
  Sender: FDA-Public Use
  Company Number: 601452

PATIENT
  Age: 9 Day
  Weight: 2.7 kg

DRUGS (1)
  1. TISSEEL VH KIT [Suspect]
     Indication: CRANIOPHARYNGIOMA
     Dosage: ONCE; INTRAMENINGEAL
     Dates: start: 20040729, end: 20040729

REACTIONS (6)
  - BLOOD IMMUNOGLOBULIN E INCREASED [None]
  - BLOOD PRESSURE DECREASED [None]
  - BRAIN OEDEMA [None]
  - BRONCHOSPASM [None]
  - INTRACRANIAL PRESSURE INCREASED [None]
  - NEONATAL DISORDER [None]
